FAERS Safety Report 15436310 (Version 1)
Quarter: 2018Q3

REPORT INFORMATION
  Report Type: Spontaneous
  Country: US (occurrence: US)
  Receive Date: 20180924
  Receipt Date: 20180924
  Transmission Date: 20181010
  Serious: No
  Sender: FDA-Public Use
  Company Number: None

PATIENT
  Age: 43 Year
  Sex: Female
  Weight: 60.75 kg

DRUGS (1)
  1. DAILY SPF 30 MOISTURIZER (TITANIUM DIOXIDE) [Suspect]
     Active Substance: TITANIUM DIOXIDE
     Indication: PROPHYLAXIS AGAINST SOLAR RADIATION
     Dosage: ?          OTHER STRENGTH:DOESNT SAY;?
     Route: 061
     Dates: start: 20180924, end: 20180924

REACTIONS (1)
  - Application site rash [None]

NARRATIVE: CASE EVENT DATE: 20180924
